FAERS Safety Report 25043344 (Version 1)
Quarter: 2025Q1

REPORT INFORMATION
  Report Type: Report from Study
  Country: US (occurrence: US)
  Receive Date: 20250305
  Receipt Date: 20250305
  Transmission Date: 20250408
  Serious: Yes (Hospitalization, Other)
  Sender: ABBVIE
  Company Number: US-ABBVIE-6154800

PATIENT
  Age: 65 Year
  Sex: Female

DRUGS (1)
  1. RESTASIS [Suspect]
     Active Substance: CYCLOSPORINE
     Indication: Product used for unknown indication
     Route: 047

REACTIONS (5)
  - Brain injury [Unknown]
  - Unevaluable event [Unknown]
  - Multi-organ disorder [Unknown]
  - Illness [Unknown]
  - Blindness [Unknown]

NARRATIVE: CASE EVENT DATE: 20040101
